FAERS Safety Report 6308634-4 (Version None)
Quarter: 2009Q3

REPORT INFORMATION
  Report Type: 
  Country: None (occurrence: None)
  Receive Date: 20090811
  Receipt Date: 20090602
  Transmission Date: 20100115
  Serious: No
  Sender: FDA-Public Use
  Company Number: 1000006597

PATIENT
  Age: 58 Year
  Sex: Female

DRUGS (3)
  1. SAVELLA [Suspect]
     Indication: FIBROMYALGIA
     Dosage: 12.5 MG (12.5 MG, 1 IN 1 D), ORAL
     Route: 048
     Dates: start: 20090528, end: 20090528
  2. SAVELLA [Suspect]
     Indication: FIBROMYALGIA
     Dosage: 25 MG (12.5 MG, 2 IN 1 D), ORAL
     Route: 048
     Dates: start: 20090529, end: 20090530
  3. DIOVAN HCT [Concomitant]

REACTIONS (3)
  - NAUSEA [None]
  - PALPITATIONS [None]
  - VOMITING [None]
